FAERS Safety Report 24078571 (Version 1)
Quarter: 2024Q3

REPORT INFORMATION
  Report Type: Spontaneous
  Country: JP (occurrence: JP)
  Receive Date: 20240711
  Receipt Date: 20240711
  Transmission Date: 20241016
  Serious: Yes (Hospitalization)
  Sender: MYLAN
  Company Number: JP-MYLANLABS-2024M1063995

PATIENT
  Age: 71 Year
  Sex: Male

DRUGS (9)
  1. MYCOPHENOLATE MOFETIL [Suspect]
     Active Substance: MYCOPHENOLATE MOFETIL
     Indication: Immunosuppression
     Route: 048
  2. CYCLOSPORINE [Suspect]
     Active Substance: CYCLOSPORINE
     Indication: Product used for unknown indication
     Route: 065
  3. RITUXIMAB [Suspect]
     Active Substance: RITUXIMAB
     Indication: Immunosuppression
     Route: 065
  4. METHYLPREDNISOLONE [Suspect]
     Active Substance: METHYLPREDNISOLONE
     Indication: Immunosuppression
     Route: 065
  5. METHYLPREDNISOLONE [Suspect]
     Active Substance: METHYLPREDNISOLONE
     Indication: Kidney transplant rejection
  6. EVEROLIMUS [Suspect]
     Active Substance: EVEROLIMUS
     Indication: Immunosuppression
     Route: 065
  7. EVEROLIMUS [Suspect]
     Active Substance: EVEROLIMUS
     Indication: Kidney transplant rejection
  8. GUSPERIMUS [Suspect]
     Active Substance: GUSPERIMUS
     Indication: Kidney transplant rejection
     Route: 065
  9. MEROPENEM [Suspect]
     Active Substance: MEROPENEM
     Indication: Emphysematous pyelonephritis
     Route: 065

REACTIONS (2)
  - Emphysematous pyelonephritis [Unknown]
  - Drug ineffective [Unknown]
